FAERS Safety Report 8599346-5 (Version None)
Quarter: 2012Q3

REPORT INFORMATION
  Report Type: 
  Country: None (occurrence: None)
  Receive Date: 20120816
  Receipt Date: 20120809
  Transmission Date: 20120928
  Serious: Yes (Hospitalization, Other)
  Sender: FDA-Public Use
  Company Number: US-ROCHE-1099702

PATIENT

DRUGS (2)
  1. RITUXAN [Suspect]
     Indication: NON-HODGKIN'S LYMPHOMA
     Dates: start: 20050101
  2. RITUXAN [Suspect]
     Dosage: LATE DEC/2011 OR JAN/2012

REACTIONS (13)
  - WEIGHT DECREASED [None]
  - PARAESTHESIA [None]
  - FATIGUE [None]
  - IRRITABILITY [None]
  - ULCER HAEMORRHAGE [None]
  - NERVOUSNESS [None]
  - TREMOR [None]
  - PAPILLOMA VIRAL INFECTION [None]
  - LOWER LIMB FRACTURE [None]
  - UNWANTED AWARENESS DURING ANAESTHESIA [None]
  - DYSPNOEA [None]
  - DIZZINESS [None]
  - BALANCE DISORDER [None]
